FAERS Safety Report 7161389-6 (Version None)
Quarter: 2010Q4

REPORT INFORMATION
  Report Type: 
  Country: None (occurrence: None)
  Receive Date: 20101215
  Receipt Date: 20101207
  Transmission Date: 20110411
  Serious: Yes (Death)
  Sender: FDA-Public Use
  Company Number: US-BAXTER-2010BH029614

PATIENT
  Age: 68 Year
  Sex: Female
  Weight: 60 kg

DRUGS (8)
  1. GAMMAGARD LIQUID [Suspect]
     Indication: IMMUNODEFICIENCY COMMON VARIABLE
     Route: 042
     Dates: start: 20080501, end: 20100201
  2. GAMMAGARD LIQUID [Suspect]
     Indication: PRIMARY IMMUNODEFICIENCY SYNDROME
     Route: 042
     Dates: start: 20080501, end: 20100201
  3. CLARITIN [Concomitant]
  4. ADVAIR [Concomitant]
  5. PREMARIN [Concomitant]
  6. VERAPAMIL [Concomitant]
  7. ASPIRIN [Concomitant]
  8. OXYGEN [Concomitant]

REACTIONS (1)
  - DEATH [None]
